FAERS Safety Report 7429359-8 (Version None)
Quarter: 2011Q2

REPORT INFORMATION
  Report Type: 
  Country: None (occurrence: None)
  Receive Date: 20110421
  Receipt Date: 20110412
  Transmission Date: 20111010
  Serious: Yes (Hospitalization)
  Sender: FDA-Public Use
  Company Number: US-SANOFI-AVENTIS-2011SA022834

PATIENT
  Age: 59 Year
  Sex: Female

DRUGS (2)
  1. MULTAQ [Suspect]
     Indication: ATRIAL FIBRILLATION
     Route: 048
     Dates: start: 20100801
  2. POLYETHYLENE GLYCOL [Suspect]
     Route: 065
     Dates: start: 20110227, end: 20110227

REACTIONS (1)
  - ANAPHYLACTIC SHOCK [None]
